FAERS Safety Report 5449340-8 (Version None)
Quarter: 2007Q3

REPORT INFORMATION
  Report Type: 
  Country: None (occurrence: None)
  Receive Date: 20070911
  Receipt Date: 20070904
  Transmission Date: 20080115
  Serious: Yes (Life-Threatening, Hospitalization)
  Sender: FDA-Public Use
  Company Number: CH-PFIZER INC-2007056166

PATIENT
  Age: 33 Year
  Sex: Female

DRUGS (7)
  1. ZYRTEC [Suspect]
     Dates: start: 20061113, end: 20061113
  2. NEURONTIN [Suspect]
     Route: 048
     Dates: start: 20061113, end: 20061113
  3. PARACETAMOL [Suspect]
     Dates: start: 20061113, end: 20061113
  4. SEROPRAM [Suspect]
     Dates: start: 20061113, end: 20061113
  5. PREDNISONE TAB [Suspect]
     Dates: start: 20061113, end: 20061113
  6. ECOFENAC [Suspect]
     Dates: start: 20061113, end: 20061113
  7. ACETYLCARNITINE [Concomitant]

REACTIONS (4)
  - COMA [None]
  - DRUG TOXICITY [None]
  - RESPIRATORY FAILURE [None]
  - SUICIDE ATTEMPT [None]
